FAERS Safety Report 19046959 (Version 1)
Quarter: 2021Q1

REPORT INFORMATION
  Report Type: Spontaneous
  Country: AT (occurrence: AT)
  Receive Date: 20210323
  Receipt Date: 20210323
  Transmission Date: 20210420
  Serious: Yes (Life-Threatening, Hospitalization)
  Sender: FDA-Public Use
  Company Number: AT-DSJP-DSE-2021-107705

PATIENT
  Age: 71 Year
  Sex: Male

DRUGS (3)
  1. LIXIANA [Suspect]
     Active Substance: EDOXABAN TOSYLATE
     Indication: PRODUCT USED FOR UNKNOWN INDICATION
     Dosage: 60 MG, QD
  2. VOLTAREN [Suspect]
     Active Substance: DICLOFENAC SODIUM
     Indication: PRODUCT USED FOR UNKNOWN INDICATION
     Dosage: UNK
  3. COMIRNATY [Concomitant]
     Active Substance: TOZINAMERAN
     Indication: PRODUCT USED FOR UNKNOWN INDICATION
     Dosage: UNK
     Dates: start: 20210305

REACTIONS (14)
  - Cardiac disorder [Unknown]
  - Hypotension [Unknown]
  - Gastric haemorrhage [Unknown]
  - Intensive care [Not Recovered/Not Resolved]
  - Dependence on respirator [Not Recovered/Not Resolved]
  - Pallor [Unknown]
  - Disorientation [Unknown]
  - Cyanosis [Unknown]
  - Laryngeal oedema [Recovering/Resolving]
  - Confusional state [Unknown]
  - Vomiting [Recovered/Resolved]
  - Oxygen saturation decreased [Unknown]
  - Nausea [Recovered/Resolved]
  - Retching [Recovered/Resolved]

NARRATIVE: CASE EVENT DATE: 202103
